FAERS Safety Report 14411088 (Version 1)
Quarter: 2018Q1

REPORT INFORMATION
  Report Type: Spontaneous
  Country: US (occurrence: US)
  Receive Date: 20180117
  Receipt Date: 20180117
  Transmission Date: 20180509
  Serious: Yes (Hospitalization)
  Sender: FDA-Public Use
  Company Number: None

PATIENT
  Age: 55 Year
  Sex: Female

DRUGS (19)
  1. METOLAZONE. [Concomitant]
     Active Substance: METOLAZONE
  2. OMEPRAZOLE. [Concomitant]
     Active Substance: OMEPRAZOLE
  3. POT CHLORIDE [Concomitant]
     Active Substance: POTASSIUM CHLORIDE
  4. CONTOUR [Concomitant]
  5. SPIRONOLACT [Concomitant]
     Active Substance: SPIRONOLACTONE
  6. FUROSEMIDE. [Concomitant]
     Active Substance: FUROSEMIDE
  7. ATORVASTATIN [Concomitant]
     Active Substance: ATORVASTATIN
  8. MICROLET [Concomitant]
  9. LANTUS [Concomitant]
     Active Substance: INSULIN GLARGINE
  10. XELJANZ [Suspect]
     Active Substance: TOFACITINIB CITRATE
     Indication: RHEUMATOID ARTHRITIS
     Route: 048
     Dates: start: 20170812
  11. SERTRALINE [Concomitant]
     Active Substance: SERTRALINE HYDROCHLORIDE
  12. HYDROCO/APAP [Concomitant]
     Active Substance: ACETAMINOPHEN\HYDROCODONE
  13. HUMALOG KWIK [Concomitant]
  14. CARVEDILOL. [Concomitant]
     Active Substance: CARVEDILOL
  15. CARVEDILOL. [Concomitant]
     Active Substance: CARVEDILOL
  16. METHOTREXATE. [Concomitant]
     Active Substance: METHOTREXATE
  17. LOSARTAN POT [Concomitant]
     Active Substance: LOSARTAN POTASSIUM
  18. ISOSORB MONO [Concomitant]
     Active Substance: ISOSORBIDE MONONITRATE
  19. METFORMIN [Concomitant]
     Active Substance: METFORMIN HYDROCHLORIDE

REACTIONS (1)
  - Hospitalisation [None]

NARRATIVE: CASE EVENT DATE: 20180109
